FAERS Safety Report 9369406 (Version 1)
Quarter: 2013Q2

REPORT INFORMATION
  Report Type: Report from Study
  Country: CA (occurrence: CA)
  Receive Date: 20130626
  Receipt Date: 20130626
  Transmission Date: 20140414
  Serious: Yes (Other)
  Sender: FDA-Public Use
  Company Number: CA-JNJFOC-20130613304

PATIENT
  Age: 49 Year
  Sex: Female
  Weight: 93 kg

DRUGS (5)
  1. REMICADE [Suspect]
     Indication: CROHN^S DISEASE
     Route: 042
     Dates: start: 20101028
  2. PENTASA [Concomitant]
     Route: 065
  3. PREVACID [Concomitant]
     Route: 065
  4. SULFASALAZINE [Concomitant]
     Route: 065
  5. FLORASTOR [Concomitant]
     Route: 065

REACTIONS (2)
  - Hysteroscopy [Unknown]
  - Therapeutic procedure [Unknown]
